FAERS Safety Report 8618930-3 (Version None)
Quarter: 2012Q3

REPORT INFORMATION
  Report Type: 
  Country: None (occurrence: None)
  Receive Date: 20120824
  Receipt Date: 20120815
  Transmission Date: 20120928
  Serious: Yes (Hospitalization)
  Sender: FDA-Public Use
  Company Number: JP-ABBOTT-12P-087-0963929-00

PATIENT

DRUGS (4)
  1. DEPAKENE [Suspect]
     Indication: PRODUCT USED FOR UNKNOWN INDICATION
  2. LORAZEPAM [Suspect]
     Indication: PRODUCT USED FOR UNKNOWN INDICATION
  3. LUVOX [Suspect]
     Indication: PRODUCT USED FOR UNKNOWN INDICATION
  4. ROHYPNOL [Suspect]
     Indication: PRODUCT USED FOR UNKNOWN INDICATION

REACTIONS (2)
  - DRUG DEPENDENCE [None]
  - TOXICITY TO VARIOUS AGENTS [None]
